FAERS Safety Report 4448631-7 (Version None)
Quarter: 2004Q3

REPORT INFORMATION
  Report Type: 
  Country: None (occurrence: None)
  Receive Date: 20040909
  Receipt Date: 20040823
  Transmission Date: 20050211
  Serious: Yes (Disabling)
  Sender: FDA-Public Use
  Company Number: EWC040438998

PATIENT
  Sex: Male

DRUGS (1)
  1. CIALIS [Suspect]
     Indication: ERECTILE DYSFUNCTION
     Dosage: 10 MG/1 DAY
     Dates: start: 20040215

REACTIONS (7)
  - AMAUROSIS [None]
  - BLINDNESS [None]
  - RETINAL ARTERY OCCLUSION [None]
  - RETINAL NEOVASCULARISATION [None]
  - SCOTOMA [None]
  - THROMBOSIS [None]
  - VISUAL ACUITY REDUCED [None]
